FAERS Safety Report 5264249-0 (Version None)
Quarter: 2007Q1

REPORT INFORMATION
  Report Type: 
  Country: None (occurrence: None)
  Receive Date: 20070313
  Receipt Date: 20070301
  Transmission Date: 20070707
  Serious: Yes (Other)
  Sender: FDA-Public Use
  Company Number: US-PFIZER INC-2007017497

PATIENT
  Sex: Female

DRUGS (3)
  1. CHANTIX [Suspect]
  2. VYTORIN [Concomitant]
  3. DIURETICS [Concomitant]

REACTIONS (8)
  - ABNORMAL DREAMS [None]
  - BLOOD CALCIUM DECREASED [None]
  - BLOOD CHOLESTEROL INCREASED [None]
  - BLOOD GLUCOSE INCREASED [None]
  - BLOOD POTASSIUM ABNORMAL [None]
  - BLOOD TRIGLYCERIDES INCREASED [None]
  - LIPIDS INCREASED [None]
  - NAUSEA [None]
